FAERS Safety Report 16689783 (Version 2)
Quarter: 2019Q3

REPORT INFORMATION
  Report Type: Spontaneous
  Country: TR (occurrence: TR)
  Receive Date: 20190809
  Receipt Date: 20190822
  Transmission Date: 20191004
  Serious: No
  Sender: FDA-Public Use
  Company Number: TR-MYLANLABS-2019M1073658

PATIENT
  Age: 39 Year
  Sex: Male

DRUGS (3)
  1. LEPONEX [Suspect]
     Active Substance: CLOZAPINE
     Indication: SCHIZOPHRENIA
     Dosage: 200 MILLIGRAM, QD
  2. AMISULPRIDE [Concomitant]
     Active Substance: AMISULPRIDE
     Dosage: 800 MILLIGRAM, QD
  3. LEPONEX [Suspect]
     Active Substance: CLOZAPINE
     Indication: PSYCHOTIC DISORDER
     Dosage: 25 MILLIGRAM, QD

REACTIONS (3)
  - Sedation [Unknown]
  - Drug intolerance [Unknown]
  - Salivary hypersecretion [Unknown]
